FAERS Safety Report 4575510-7 (Version None)
Quarter: 2005Q1

REPORT INFORMATION
  Report Type: 
  Country: None (occurrence: None)
  Receive Date: 20050128
  Receipt Date: 20050128
  Transmission Date: 20050727
  Serious: Yes (Disabling)
  Sender: FDA-Public Use
  Company Number: None

PATIENT
  Age: 33 Year
  Sex: Female
  Weight: 45.3597 kg

DRUGS (4)
  1. BUPROPION SR   150MG [Suspect]
     Indication: MAJOR DEPRESSION
     Dosage: 150MG   QD   ORAL
     Route: 048
     Dates: start: 20040701, end: 20040815
  2. NEURONTIN [Concomitant]
  3. ALPRAZOLAM [Concomitant]
  4. TRILEPTAL [Concomitant]

REACTIONS (2)
  - MIGRAINE [None]
  - PHARMACEUTICAL PRODUCT COMPLAINT [None]
